FAERS Safety Report 5081632-7 (Version None)
Quarter: 2006Q3

REPORT INFORMATION
  Report Type: 
  Country: None (occurrence: None)
  Receive Date: 20060811
  Receipt Date: 20060726
  Transmission Date: 20061208
  Serious: Yes (Other)
  Sender: FDA-Public Use
  Company Number: AU-2006-014507

PATIENT
  Age: 45 Year
  Sex: Male
  Weight: 83.4 kg

DRUGS (6)
  1. FLUDARABINE [Suspect]
     Indication: CHRONIC LYMPHOCYTIC LEUKAEMIA
     Dosage: 47.5 MG/DAY, 5 CYCLES X 3 DAYS, INTRAVENOUS
     Route: 042
     Dates: start: 20060125, end: 20060518
  2. CYCLOPHOSPHAMIDE [Suspect]
     Indication: CHRONIC LYMPHOCYTIC LEUKAEMIA
     Dosage: 480 MG/D, 5 CYCLES X 3 DAYS, INTRAVENOUS
     Route: 042
     Dates: start: 20060125, end: 20060518
  3. METOCLOPRAMIDE [Concomitant]
  4. CYCLIZINE [Concomitant]
  5. DOLASETRON [Concomitant]
  6. PANADENE (CODEINE PHOSPHATE) [Concomitant]

REACTIONS (2)
  - MIGRAINE [None]
  - THERAPY NON-RESPONDER [None]
